FAERS Safety Report 19726106 (Version 2)
Quarter: 2021Q3

REPORT INFORMATION
  Report Type: Spontaneous
  Country: BR (occurrence: BR)
  Receive Date: 20210820
  Receipt Date: 20210917
  Transmission Date: 20211014
  Serious: Yes (Other)
  Sender: FDA-Public Use
  Company Number: BR-SUN PHARMACEUTICAL INDUSTRIES LTD-2021R1-306663

PATIENT
  Age: 50 Year
  Sex: Male
  Weight: 76.4 kg

DRUGS (2)
  1. CITALOPRAM [Suspect]
     Active Substance: CITALOPRAM HYDROBROMIDE
     Dosage: 20 MILLIGRAM, BID
     Route: 048
     Dates: start: 202101
  2. CITALOPRAM [Suspect]
     Active Substance: CITALOPRAM HYDROBROMIDE
     Indication: GENERALISED ANXIETY DISORDER
     Dosage: 20 MILLIGRAM, QD
     Route: 048
     Dates: start: 2020, end: 2021

REACTIONS (7)
  - Dyskinesia [Unknown]
  - Tremor [Not Recovered/Not Resolved]
  - Bradykinesia [Not Recovered/Not Resolved]
  - Parkinson^s disease [Not Recovered/Not Resolved]
  - Condition aggravated [Unknown]
  - Muscular weakness [Unknown]
  - Limb discomfort [Not Recovered/Not Resolved]

NARRATIVE: CASE EVENT DATE: 2021
